FAERS Safety Report 9235694 (Version 5)
Quarter: 2014Q1

REPORT INFORMATION
  Report Type: Spontaneous
  Country: IT (occurrence: IT)
  Receive Date: 20130417
  Receipt Date: 20140218
  Transmission Date: 20141002
  Serious: Yes (Other)
  Sender: FDA-Public Use
  Company Number: IT-JNJFOC-20130401422

PATIENT
  Age: 81 Year
  Sex: Female

DRUGS (7)
  1. HALDOL [Suspect]
     Indication: DRUG ADMINISTRATION ERROR
     Route: 048
     Dates: start: 20130331, end: 20130331
  2. CLOZAPINE [Suspect]
     Indication: DRUG ADMINISTRATION ERROR
     Route: 065
     Dates: start: 20130331, end: 20130331
  3. LOSAZID [Concomitant]
     Indication: PRODUCT USED FOR UNKNOWN INDICATION
  4. TAVOR [Concomitant]
     Indication: PRODUCT USED FOR UNKNOWN INDICATION
     Route: 048
  5. CARDIOASPIRIN [Concomitant]
     Indication: PRODUCT USED FOR UNKNOWN INDICATION
     Route: 048
  6. NORVASC [Concomitant]
     Indication: PRODUCT USED FOR UNKNOWN INDICATION
     Route: 048
  7. LUCEN [Concomitant]
     Indication: PRODUCT USED FOR UNKNOWN INDICATION
     Route: 048

REACTIONS (6)
  - Speech disorder [Recovered/Resolved]
  - Miosis [Recovered/Resolved]
  - Psychomotor hyperactivity [Recovered/Resolved]
  - Medication error [Unknown]
  - Accidental exposure to product [Unknown]
  - Sluggishness [Recovered/Resolved]
